FAERS Safety Report 6856824-4 (Version None)
Quarter: 2010Q3

REPORT INFORMATION
  Report Type: 
  Country: None (occurrence: None)
  Receive Date: 20100714
  Receipt Date: 20100628
  Transmission Date: 20110219
  Serious: No
  Sender: FDA-Public Use
  Company Number: APP201000569

PATIENT
  Age: 52 Year
  Sex: Female

DRUGS (5)
  1. CARBOPLATIN [Suspect]
     Indication: OVARIAN EPITHELIAL CANCER STAGE III
     Dosage: 8 COURSES WHICH RESULTED IN REMISSION, CUMULATIVE DOSE OF 5450 MG
  2. CISPLATIN [Suspect]
     Indication: OVARIAN CANCER
     Dosage: CUMULATIVE DOSE WAS 240 MG, 3 MORE COURSES AFTER DESENSITIZATION
  3. PACLITAXEL INJECTION USP (PACLITAXEL) [Concomitant]
  4. GEMCITABINE [Concomitant]
  5. DOCETAXEL [Concomitant]

REACTIONS (8)
  - DISEASE PROGRESSION [None]
  - DRUG INEFFECTIVE [None]
  - ERYTHEMA [None]
  - HYPERSENSITIVITY [None]
  - ILEUS [None]
  - OVARIAN EPITHELIAL CANCER [None]
  - PRURITUS [None]
  - TACHYCARDIA [None]
